FAERS Safety Report 5746259-X (Version None)
Quarter: 2008Q2

REPORT INFORMATION
  Report Type: 
  Country: None (occurrence: None)
  Receive Date: 20080522
  Receipt Date: 20080521
  Transmission Date: 20081010
  Serious: Yes (Other)
  Sender: FDA-Public Use
  Company Number: US-BRISTOL-MYERS SQUIBB COMPANY-14195788

PATIENT
  Age: 61 Year
  Sex: Male

DRUGS (7)
  1. ARIPIPRAZOLE [Suspect]
  2. GABAPENTIN [Interacting]
  3. ESKALITH [Interacting]
     Indication: BIPOLAR DISORDER
     Dosage: LATER REDUCED TO 600 MG/DAY AS PART OF MAINTAINENCE THERAPY.
  4. MEMANTINE HCL [Interacting]
     Indication: DEMENTIA ALZHEIMER'S TYPE
  5. NAPROXEN [Interacting]
     Indication: ARTHRALGIA
  6. DIVALPROEX SODIUM [Interacting]
  7. MULTI-VITAMIN [Concomitant]

REACTIONS (4)
  - COGNITIVE DISORDER [None]
  - DRUG INTERACTION [None]
  - PARKINSONISM [None]
  - SOMNOLENCE [None]
